FAERS Safety Report 6763986-6 (Version None)
Quarter: 2010Q2

REPORT INFORMATION
  Report Type: 
  Country: None (occurrence: None)
  Receive Date: 20100610
  Receipt Date: 20100603
  Transmission Date: 20101027
  Serious: Yes (Hospitalization)
  Sender: FDA-Public Use
  Company Number: US-JNJFOC-20100602712

PATIENT
  Sex: Male
  Weight: 78.2 kg

DRUGS (2)
  1. LOPERAMIDE [Suspect]
     Indication: FREQUENT BOWEL MOVEMENTS
     Route: 065
  2. CAMPTOSAR [Suspect]
     Indication: COLON CANCER
     Route: 042

REACTIONS (2)
  - DEHYDRATION [None]
  - MENTAL STATUS CHANGES [None]
